FAERS Safety Report 10357172 (Version 4)
Quarter: 2014Q3

REPORT INFORMATION
  Report Type: Report from Study
  Country: AU (occurrence: AU)
  Receive Date: 20140801
  Receipt Date: 20140916
  Transmission Date: 20150326
  Serious: Yes (Hospitalization, Other)
  Sender: FDA-Public Use
  Company Number: PHHY2014AU093028

PATIENT
  Age: 61 Year
  Sex: Male
  Weight: 47.5 kg

DRUGS (8)
  1. CLOZARIL [Suspect]
     Active Substance: CLOZAPINE
     Dosage: 150 MG, UNK (TITRATING DOSE)
     Dates: end: 20140728
  2. PALIPERIDONE [Concomitant]
     Active Substance: PALIPERIDONE
     Dosage: 75 MG, 4 WEEKLY
     Route: 030
     Dates: start: 20140801
  3. TIOTROPIUM [Concomitant]
     Active Substance: TIOTROPIUM
     Indication: CHRONIC OBSTRUCTIVE PULMONARY DISEASE
     Dosage: 18 UG, DAILY
     Route: 055
     Dates: start: 20140101
  4. CLOZARIL [Suspect]
     Active Substance: CLOZAPINE
     Indication: SCHIZOPHRENIA
     Dosage: 100 MG,
     Route: 048
     Dates: start: 20140710
  5. THIAMINE [Concomitant]
     Active Substance: THIAMINE
     Indication: ALCOHOLISM
     Dosage: 100 MG, DAILY
     Route: 048
     Dates: start: 20140101
  6. PALIPERIDONE [Concomitant]
     Active Substance: PALIPERIDONE
     Indication: PSYCHOTIC DISORDER
     Dosage: 75 MG, 4 WEEKLY
     Route: 030
     Dates: start: 20140101
  7. MULTIVITAMIN [Concomitant]
     Active Substance: VITAMINS
     Indication: NUTRITIONAL SUPPLEMENTATION
     Dosage: UNK UKN, DAILY
     Route: 048
     Dates: start: 20140101
  8. SALT TABLETS [Concomitant]
     Indication: BLOOD SODIUM DECREASED
     Dosage: 1 DF, BID
     Route: 048

REACTIONS (14)
  - Myocarditis [Recovered/Resolved]
  - Haematocrit decreased [Unknown]
  - Lymphocyte count decreased [Unknown]
  - Pyrexia [Recovered/Resolved]
  - Haemoglobin decreased [Unknown]
  - Fatigue [Unknown]
  - Sepsis [Recovered/Resolved]
  - Atelectasis [Unknown]
  - Pleural effusion [Unknown]
  - Red blood cell count decreased [Unknown]
  - C-reactive protein increased [Recovered/Resolved]
  - Troponin increased [Recovered/Resolved]
  - Sinus tachycardia [Recovered/Resolved]
  - Malaise [Unknown]

NARRATIVE: CASE EVENT DATE: 20140728
